FAERS Safety Report 18969526 (Version 1)
Quarter: 2021Q1

REPORT INFORMATION
  Report Type: Spontaneous
  Country: GB (occurrence: GB)
  Receive Date: 20210304
  Receipt Date: 20210304
  Transmission Date: 20210420
  Serious: Yes (Other)
  Sender: FDA-Public Use
  Company Number: GB-OTSUKA-2021_006372

PATIENT
  Age: 20 Year
  Sex: Male

DRUGS (2)
  1. ARIPIPRAZOLE. [Suspect]
     Active Substance: ARIPIPRAZOLE
     Indication: ILL-DEFINED DISORDER
     Dosage: 1 DF, EVERY 4 WEEKS
     Route: 051
     Dates: start: 20180401, end: 20190311
  2. ARIPIPRAZOLE. [Suspect]
     Active Substance: ARIPIPRAZOLE
     Indication: PSYCHOTIC DISORDER

REACTIONS (7)
  - Hypersexuality [Unknown]
  - Binge eating [Unknown]
  - Product communication issue [Unknown]
  - Compulsive shopping [Unknown]
  - Gambling disorder [Unknown]
  - Product use in unapproved indication [Unknown]
  - Disturbance in sexual arousal [Recovered/Resolved]

NARRATIVE: CASE EVENT DATE: 20180401
